FAERS Safety Report 5239765-8 (Version None)
Quarter: 2007Q1

REPORT INFORMATION
  Report Type: 
  Country: None (occurrence: None)
  Receive Date: 20070216
  Receipt Date: 20070206
  Transmission Date: 20070707
  Serious: Yes (Other)
  Sender: FDA-Public Use
  Company Number: US-ELI_LILLY_AND_COMPANY-US200701004831

PATIENT
  Age: 75 Year
  Sex: Female

DRUGS (15)
  1. HUMALOG [Suspect]
     Indication: DIABETES MELLITUS
     Dosage: UNK, UNKNOWN
     Dates: start: 20010101
  2. LANTUS [Concomitant]
     Indication: DIABETES MELLITUS
     Dosage: 75 U,
  3. COREG [Concomitant]
     Dosage: 25 MG, 2/D
  4. ASPIRIN [Concomitant]
     Dosage: 81 MG, DAILY (1/D)
  5. SYNTHROID [Concomitant]
     Dosage: 0.2 MG, DAILY (1/D)
  6. LANOXIN [Concomitant]
     Dosage: 0.125 MG, DAILY (1/D)
  7. PREVACID [Concomitant]
     Dosage: 30 MG, DAILY (1/D)
  8. LASIX [Concomitant]
     Dosage: 80 MG, 2/D
  9. ZYLOPRIM [Concomitant]
     Dosage: 300 MG, DAILY (1/D)
  10. APRESOLINE [Concomitant]
     Dosage: 25 MG, 4/D
  11. POTASSIUM ACETATE [Concomitant]
     Dosage: 10 MG, 2/D
  12. XANAX [Concomitant]
     Dosage: UNK, AS NEEDED
  13. RESTORIL [Concomitant]
     Dosage: 30 MG, DAILY (1/D)
  14. NEURONTIN [Concomitant]
     Dosage: 300 MG, DAILY (1/D)
  15. CYMBALTA [Concomitant]
     Dosage: 30 MG, DAILY (1/D)

REACTIONS (11)
  - ARTHRALGIA [None]
  - ARTHRITIS [None]
  - BLOOD GLUCOSE INCREASED [None]
  - CARDIOMYOPATHY [None]
  - EXOSTOSIS [None]
  - FOOD INTOLERANCE [None]
  - GAIT DISTURBANCE [None]
  - IMPLANTABLE DEFIBRILLATOR INSERTION [None]
  - NEUROPATHY [None]
  - PAIN IN EXTREMITY [None]
  - WEIGHT INCREASED [None]
